FAERS Safety Report 8417355 (Version 2)
Quarter: 2013Q4

REPORT INFORMATION
  Report Type: Spontaneous
  Country: US (occurrence: US)
  Receive Date: 20120220
  Receipt Date: 20131113
  Transmission Date: 20140711
  Serious: Yes (Other)
  Sender: FDA-Public Use
  Company Number: US-ROCHE-793731

PATIENT
  Age: 24 Year
  Sex: Female
  Weight: 68.1 kg

DRUGS (7)
  1. ACCUTANE [Suspect]
     Indication: ACNE
     Route: 065
  2. ACCUTANE [Suspect]
     Route: 065
  3. ACCUTANE [Suspect]
     Route: 065
     Dates: start: 19870713, end: 198710
  4. ACCUTANE [Suspect]
     Route: 065
     Dates: start: 19910513, end: 199106
  5. ACCUTANE [Suspect]
     Route: 065
  6. TETRACYCLINE [Concomitant]
  7. ERYTHROMYCIN [Concomitant]

REACTIONS (10)
  - Inflammatory bowel disease [Unknown]
  - Depression [Unknown]
  - Irritable bowel syndrome [Unknown]
  - Hypertension [Unknown]
  - Dry skin [Unknown]
  - Lip dry [Unknown]
  - Cheilitis [Unknown]
  - Headache [Unknown]
  - Back pain [Unknown]
  - Myalgia [Unknown]
